FAERS Safety Report 20873747 (Version 2)
Quarter: 2022Q2

REPORT INFORMATION
  Report Type: Report from Study
  Country: CA (occurrence: CA)
  Receive Date: 20220525
  Receipt Date: 20220607
  Transmission Date: 20220721
  Serious: Yes (Other)
  Sender: FDA-Public Use
  Company Number: CA-UCBSA-2022025589

PATIENT
  Age: 81 Year
  Sex: Female

DRUGS (2)
  1. CERTOLIZUMAB PEGOL [Suspect]
     Active Substance: CERTOLIZUMAB PEGOL
     Indication: Rheumatoid arthritis
     Dosage: 400 MILLIGRAM, EV 2 WEEKS(QOW)
     Route: 058
     Dates: start: 20220427, end: 20220427
  2. CERTOLIZUMAB PEGOL [Suspect]
     Active Substance: CERTOLIZUMAB PEGOL
     Dosage: 1 INJECTION AND REFUSED SECOND
     Route: 058
     Dates: start: 20220511, end: 20220511

REACTIONS (7)
  - Syncope [Unknown]
  - Mental impairment [Unknown]
  - Asthenia [Unknown]
  - Fatigue [Unknown]
  - Dizziness [Unknown]
  - COVID-19 [Unknown]
  - Incorrect dose administered [Unknown]

NARRATIVE: CASE EVENT DATE: 20220401
